FAERS Safety Report 7887687-6 (Version None)
Quarter: 2011Q4

REPORT INFORMATION
  Report Type: 
  Country: None (occurrence: None)
  Receive Date: 20111103
  Receipt Date: 20081113
  Transmission Date: 20120403
  Serious: No
  Sender: FDA-Public Use
  Company Number: 2008BI030747

PATIENT
  Sex: Female

DRUGS (2)
  1. TYSABRI [Suspect]
     Route: 042
     Dates: start: 20090511, end: 20100301
  2. TYSABRI [Suspect]
     Indication: MULTIPLE SCLEROSIS
     Route: 042
     Dates: start: 20080402, end: 20081117

REACTIONS (10)
  - ABASIA [None]
  - BEDRIDDEN [None]
  - BLINDNESS [None]
  - GAIT DISTURBANCE [None]
  - PRIMARY PROGRESSIVE MULTIPLE SCLEROSIS [None]
  - HYPOPHAGIA [None]
  - DRUG INEFFECTIVE [None]
  - VISUAL IMPAIRMENT [None]
  - MULTIPLE SCLEROSIS [None]
  - TREMOR [None]
